FAERS Safety Report 9156621 (Version 5)
Quarter: 2013Q3

REPORT INFORMATION
  Report Type: Spontaneous
  Country: US (occurrence: None)
  Receive Date: 20130208
  Receipt Date: 20130722
  Transmission Date: 20140515
  Serious: Yes (Disabling, Other)
  Sender: FDA-Public Use
  Company Number: ACO_33973_2013

PATIENT
  Age: 65 Year
  Sex: Female
  Weight: 90.7 kg

DRUGS (7)
  1. AMPYRA [Suspect]
     Indication: MULTIPLE SCLEROSIS
     Route: 048
     Dates: end: 20130120
  2. BACLOFEN (BACLOFEN) [Concomitant]
  3. CITALOPRAM [Concomitant]
  4. VITAMIN C [Concomitant]
  5. VITAMIN D (ERGOCALCIFEROL) [Concomitant]
  6. PLAVIX [Concomitant]
  7. ZETIA [Concomitant]

REACTIONS (11)
  - Movement disorder [None]
  - Mobility decreased [None]
  - Tremor [None]
  - Muscular weakness [None]
  - Body temperature increased [None]
  - Dysgraphia [None]
  - Condition aggravated [None]
  - Muscular weakness [None]
  - Treatment noncompliance [None]
  - Drug administration error [None]
  - Therapeutic response unexpected [None]
